FAERS Safety Report 7370018-8 (Version None)
Quarter: 2011Q1

REPORT INFORMATION
  Report Type: 
  Country: None (occurrence: None)
  Receive Date: 20110323
  Receipt Date: 20110309
  Transmission Date: 20110831
  Serious: Yes (Hospitalization, Other)
  Sender: FDA-Public Use
  Company Number: PHHO2011DE00751

PATIENT
  Sex: Male
  Weight: 78 kg

DRUGS (2)
  1. FTY [Suspect]
     Dosage: 0.5 MG, QD
     Route: 048
     Dates: start: 20100427, end: 20110107
  2. FTY [Suspect]
     Indication: MULTIPLE SCLEROSIS
     Dosage: DOSE BLINDED
     Dates: start: 20080424, end: 20100426

REACTIONS (24)
  - VESTIBULAR NEURONITIS [None]
  - NAUSEA [None]
  - LAGOPHTHALMOS [None]
  - ATAXIA [None]
  - INNER EAR DISORDER [None]
  - PTERYGIUM [None]
  - DIZZINESS [None]
  - VISION BLURRED [None]
  - HEARING IMPAIRED [None]
  - PARAESTHESIA [None]
  - ANGIOPATHY [None]
  - EYELID DISORDER [None]
  - VIITH NERVE PARALYSIS [None]
  - POLYNEUROPATHY [None]
  - BLISTER [None]
  - FACIAL PARESIS [None]
  - GAIT DISTURBANCE [None]
  - VOMITING [None]
  - NYSTAGMUS [None]
  - HERPES ZOSTER [None]
  - HERPES ZOSTER OTICUS [None]
  - HEADACHE [None]
  - VESTIBULAR DISORDER [None]
  - FACIAL NERVE DISORDER [None]
